FAERS Safety Report 8241373 (Version 2)
Quarter: 2015Q4

REPORT INFORMATION
  Report Type: Spontaneous
  Country: US (occurrence: US)
  Receive Date: 20111111
  Receipt Date: 20151117
  Transmission Date: 20160305
  Serious: Yes (Life-Threatening, Hospitalization, Disabling, Other)
  Sender: FDA-Public Use
  Company Number: US-GLAXOSMITHKLINE-A0951882A

PATIENT
  Age: 66 Year
  Sex: Female
  Weight: 102 kg

DRUGS (19)
  1. SYNTHROID [Concomitant]
     Active Substance: LEVOTHYROXINE SODIUM
  2. VITAMIN D (COLECALCIFEROL) [Concomitant]
  3. POTASSIUM CL [Concomitant]
     Active Substance: POTASSIUM CHLORIDE
  4. PROTONIX (OMEPRAZOLE) [Concomitant]
  5. CELEBREX [Concomitant]
     Active Substance: CELECOXIB
  6. RHINOCORT (BECLOMETASONE DIPROPIONATE) [Concomitant]
     Active Substance: BECLOMETHASONE DIPROPIONATE
  7. BUSPAR [Concomitant]
     Active Substance: BUSPIRONE HYDROCHLORIDE
  8. LEVOTHYROXINE. [Concomitant]
     Active Substance: LEVOTHYROXINE
  9. COUMADIN [Suspect]
     Active Substance: WARFARIN SODIUM
     Indication: PRODUCT USED FOR UNKNOWN INDICATION
     Route: 065
  10. MIRALAX [Concomitant]
     Active Substance: POLYETHYLENE GLYCOL 3350
  11. ZOCOR [Concomitant]
     Active Substance: SIMVASTATIN
  12. ARIXTRA [Suspect]
     Active Substance: FONDAPARINUX SODIUM
     Indication: DEEP VEIN THROMBOSIS
     Dosage: 10 MG, QD
     Route: 058
     Dates: start: 20111024, end: 20111030
  13. CLARITIN [Concomitant]
     Active Substance: LORATADINE
  14. LEXAPRO [Concomitant]
     Active Substance: ESCITALOPRAM OXALATE
  15. METFORMIN [Concomitant]
     Active Substance: METFORMIN HYDROCHLORIDE
  16. PERCOCET [Concomitant]
     Active Substance: ACETAMINOPHEN\OXYCODONE HYDROCHLORIDE
  17. PRAVACHOL [Concomitant]
     Active Substance: PRAVASTATIN SODIUM
  18. BENEFIBER [Concomitant]
     Active Substance: STARCH, WHEAT
  19. ALLEGRA [Concomitant]
     Active Substance: FEXOFENADINE HYDROCHLORIDE
     Dosage: UNK

REACTIONS (14)
  - Acute abdomen [Unknown]
  - Bladder necrosis [Not Recovered/Not Resolved]
  - International normalised ratio fluctuation [Unknown]
  - Hypotension [Unknown]
  - Intra-abdominal haematoma [Unknown]
  - Renal failure [Not Recovered/Not Resolved]
  - Ileostomy [Not Recovered/Not Resolved]
  - Retroperitoneal haemorrhage [Unknown]
  - Prothrombin time abnormal [Unknown]
  - Renal impairment [Unknown]
  - Peritoneal haematoma [Not Recovered/Not Resolved]
  - Gastrointestinal necrosis [Not Recovered/Not Resolved]
  - Bladder dysfunction [Unknown]
  - Blood creatinine increased [Unknown]

NARRATIVE: CASE EVENT DATE: 201110
